FAERS Safety Report 7252560-3 (Version None)
Quarter: 2011Q1

REPORT INFORMATION
  Report Type: 
  Country: None (occurrence: None)
  Receive Date: 20110129
  Receipt Date: 20100209
  Transmission Date: 20110831
  Serious: No
  Sender: FDA-Public Use
  Company Number: US-ABBOTT-10P-163-0619949-00

PATIENT
  Weight: 91.708 kg

DRUGS (2)
  1. METHOTREXATE [Concomitant]
     Indication: PSORIASIS
     Route: 048
  2. HUMIRA [Suspect]
     Indication: PSORIASIS
     Route: 058
     Dates: start: 20091101

REACTIONS (3)
  - OEDEMA PERIPHERAL [None]
  - SKIN TIGHTNESS [None]
  - SKIN DISORDER [None]
